FAERS Safety Report 10423578 (Version 1)
Quarter: 2014Q3

REPORT INFORMATION
  Report Type: Spontaneous
  Country: US (occurrence: None)
  Receive Date: 20140722
  Receipt Date: 20140722
  Transmission Date: 20150326
  Serious: No
  Sender: FDA-Public Use
  Company Number: 163-10004-14063868

PATIENT
  Age: 76 Year
  Sex: Male

DRUGS (8)
  1. OTEZLA [Suspect]
     Active Substance: APREMILAST
     Indication: PSORIATIC ARTHROPATHY
     Route: 048
  2. SIMCOR [Concomitant]
     Active Substance: NIACIN\SIMVASTATIN
  3. ASPIR-81 (ACETYLSALICYLIC ACID) [Concomitant]
  4. HUMIRA (ADALIMUMAB) [Concomitant]
  5. FISH OIL [Concomitant]
     Active Substance: FISH OIL
  6. ADVAIR DISKUS [Concomitant]
     Active Substance: FLUTICASONE PROPIONATE\SALMETEROL XINAFOATE
  7. PROCARDIA [Concomitant]
     Active Substance: NIFEDIPINE
  8. SPIRIVA [Concomitant]
     Active Substance: TIOTROPIUM BROMIDE MONOHYDRATE

REACTIONS (4)
  - Decreased appetite [None]
  - Dizziness [None]
  - Nausea [None]
  - Upper respiratory tract infection [None]
